FAERS Safety Report 6580278-9 (Version None)
Quarter: 2010Q1

REPORT INFORMATION
  Report Type: 
  Country: None (occurrence: None)
  Receive Date: 20100212
  Receipt Date: 20100202
  Transmission Date: 20100710
  Serious: Yes (Death)
  Sender: FDA-Public Use
  Company Number: US-WYE-H09575509

PATIENT
  Sex: Female
  Weight: 59.02 kg

DRUGS (9)
  1. EFFEXOR XR [Suspect]
     Indication: MAJOR DEPRESSION
     Route: 048
     Dates: start: 20090402, end: 20090408
  2. EFFEXOR XR [Suspect]
     Route: 048
     Dates: start: 20090409, end: 20090421
  3. EFFEXOR XR [Suspect]
     Route: 048
     Dates: start: 20090422
  4. CLONAZEPAM [Concomitant]
     Route: 048
     Dates: start: 20090225, end: 20090401
  5. CLONAZEPAM [Concomitant]
     Dosage: .5 MG TWICE DAILY AND 0.25 MG AT 2PM
     Route: 048
     Dates: start: 20090402, end: 20090421
  6. CLONAZEPAM [Concomitant]
     Route: 048
     Dates: start: 20090422
  7. LAMOTRIGINE [Concomitant]
     Route: 048
     Dates: start: 20090319, end: 20090401
  8. LAMOTRIGINE [Concomitant]
     Route: 048
     Dates: start: 20090402, end: 20090421
  9. LAMOTRIGINE [Concomitant]
     Route: 048
     Dates: start: 20090422

REACTIONS (3)
  - ASPHYXIA [None]
  - COMPLETED SUICIDE [None]
  - SUICIDAL IDEATION [None]
